FAERS Safety Report 14832200 (Version 1)
Quarter: 2018Q2

REPORT INFORMATION
  Report Type: Spontaneous
  Country: DK (occurrence: DK)
  Receive Date: 20180501
  Receipt Date: 20180501
  Transmission Date: 20180711
  Serious: Yes (Hospitalization, Other)
  Sender: FDA-Public Use
  Company Number: PHHY2018DK072121

PATIENT
  Age: 10 Year
  Sex: Female

DRUGS (3)
  1. ETANERCEPT [Suspect]
     Active Substance: ETANERCEPT
     Indication: CHRONIC RECURRENT MULTIFOCAL OSTEOMYELITIS
     Dosage: UNK
     Route: 065
  2. ADALIMUMAB [Suspect]
     Active Substance: ADALIMUMAB
     Indication: CHRONIC RECURRENT MULTIFOCAL OSTEOMYELITIS
     Dosage: 2 DF, QW
     Route: 058
  3. METHOTREXATE. [Suspect]
     Active Substance: METHOTREXATE
     Indication: PRODUCT USED FOR UNKNOWN INDICATION
     Dosage: 10 MG, QW
     Route: 065

REACTIONS (9)
  - Subdural empyema [Recovered/Resolved]
  - Brain abscess [Recovered/Resolved]
  - Pustular psoriasis [Unknown]
  - Off label use [Unknown]
  - Abdominal pain upper [Unknown]
  - Encephalitis [Recovered/Resolved]
  - Sinusitis [Recovered/Resolved]
  - Condition aggravated [Unknown]
  - Otitis media [Unknown]
